FAERS Safety Report 4787300-0 (Version None)
Quarter: 2005Q4

REPORT INFORMATION
  Report Type: 
  Country: None (occurrence: None)
  Receive Date: 20051003
  Receipt Date: 20050919
  Transmission Date: 20060501
  Serious: Yes (Death)
  Sender: FDA-Public Use
  Company Number: GXKR2005US01659

PATIENT
  Age: 74 Year
  Sex: Male

DRUGS (3)
  1. VANCOMYCIN [Suspect]
     Indication: PYREXIA
  2. CIPROFLOXACIN [Suspect]
  3. PIPERACILLIN W/TAZOBACTAM (PIPERACILLIN, TAZOBACTAM) [Suspect]

REACTIONS (7)
  - BLISTER [None]
  - DIFFUSE ALVEOLAR DAMAGE [None]
  - LINEAR IGA DISEASE [None]
  - PULMONARY OEDEMA [None]
  - RASH ERYTHEMATOUS [None]
  - SEPSIS [None]
  - SKIN ULCER [None]
